FAERS Safety Report 6034825-6 (Version None)
Quarter: 2009Q1

REPORT INFORMATION
  Report Type: 
  Country: None (occurrence: None)
  Receive Date: 20090109
  Receipt Date: 20090109
  Transmission Date: 20090719
  Serious: No
  Sender: FDA-Public Use
  Company Number: None

PATIENT
  Sex: Female

DRUGS (9)
  1. ZOMETA [Suspect]
     Indication: BREAST CANCER METASTATIC
     Dosage: 4 MG MONTHLY IV
     Route: 042
     Dates: start: 19970101, end: 20050101
  2. AREDIA [Suspect]
     Indication: BREAST CANCER METASTATIC
     Dosage: 90 MG MONTHLY IV
     Route: 042
     Dates: start: 20030101, end: 20050101
  3. GLIPIZIDE [Concomitant]
  4. ZETIA [Concomitant]
  5. DETROL [Concomitant]
  6. PROTONIX [Concomitant]
  7. FEMARA [Concomitant]
  8. COUMADIN [Concomitant]
  9. PRAVASTATIN [Concomitant]

REACTIONS (2)
  - BONE DISORDER [None]
  - JAW DISORDER [None]
